FAERS Safety Report 23790658 (Version 4)
Quarter: 2024Q2

REPORT INFORMATION
  Report Type: Report from Study
  Country: JP (occurrence: JP)
  Receive Date: 20240427
  Receipt Date: 20240516
  Transmission Date: 20240716
  Serious: No
  Sender: FDA-Public Use
  Company Number: JP-UCBJ-CD202305819UCBPHAPROD

PATIENT
  Age: 2 Year
  Sex: Female
  Weight: 11 kg

DRUGS (9)
  1. FENFLURAMINE HYDROCHLORIDE [Suspect]
     Active Substance: FENFLURAMINE HYDROCHLORIDE
     Indication: Severe myoclonic epilepsy of infancy
     Dosage: 0.1, MILLIGRAM PER KILOGRAM, 2X/DAY (BID)
     Route: 048
     Dates: start: 20230314
  2. FENFLURAMINE HYDROCHLORIDE [Suspect]
     Active Substance: FENFLURAMINE HYDROCHLORIDE
     Dosage: 0.15 MILLIGRAM PER KILOGRAM, 2X/DAY (BID)
     Route: 048
     Dates: start: 20230321
  3. FENFLURAMINE HYDROCHLORIDE [Suspect]
     Active Substance: FENFLURAMINE HYDROCHLORIDE
     Dosage: 0.2 MILLIGRAM PER KILOGRAM, 2X/DAY (BID)
     Route: 048
     Dates: start: 20230328
  4. DIACOMIT [Concomitant]
     Active Substance: STIRIPENTOL
     Indication: Severe myoclonic epilepsy of infancy
     Dosage: 250 MILLIGRAM PER DAY
     Route: 048
     Dates: start: 20230905
  5. DIACOMIT [Concomitant]
     Active Substance: STIRIPENTOL
     Dosage: 200 MILLIGRAM PER DAY
     Route: 048
     Dates: start: 20230905, end: 20231024
  6. DIACOMIT [Concomitant]
     Active Substance: STIRIPENTOL
     Dosage: 250 MILLIGRAM PER DAY
     Route: 048
     Dates: start: 20231024
  7. LEVETIRACETAM [Concomitant]
     Active Substance: LEVETIRACETAM
     Indication: Severe myoclonic epilepsy of infancy
     Dosage: 500 MILLIGRAM
     Route: 048
  8. VALPROATE SODIUM [Concomitant]
     Active Substance: VALPROATE SODIUM
     Indication: Severe myoclonic epilepsy of infancy
     Dosage: 250 MILLIGRAM PER DAY
     Route: 048
  9. MYSTAN [Concomitant]
     Active Substance: CLOBAZAM
     Indication: Severe myoclonic epilepsy of infancy
     Dosage: 2 MILLIGRAM PER DAY
     Route: 048

REACTIONS (2)
  - Somnolence [Not Recovered/Not Resolved]
  - Decreased appetite [Not Recovered/Not Resolved]

NARRATIVE: CASE EVENT DATE: 20230314
